FAERS Safety Report 4524670-2 (Version None)
Quarter: 2004Q4

REPORT INFORMATION
  Report Type: 
  Country: None (occurrence: None)
  Receive Date: 20041211
  Receipt Date: 20030605
  Transmission Date: 20050328
  Serious: Yes (Hospitalization, Disabling, Other)
  Sender: FDA-Public Use
  Company Number: US-MERCK-0306USA00857

PATIENT
  Age: 35 Year
  Sex: Female
  Weight: 100 kg

DRUGS (4)
  1. VIOXX [Suspect]
     Route: 048
  2. ZYRTEC [Concomitant]
     Route: 048
  3. SKELAXIN [Concomitant]
     Route: 048
  4. TAZAC [Concomitant]
     Route: 048

REACTIONS (19)
  - ADVERSE EVENT [None]
  - ANGINA UNSTABLE [None]
  - ANXIETY [None]
  - ARTHRALGIA [None]
  - BLOOD PRESSURE INCREASED [None]
  - CHEST DISCOMFORT [None]
  - ERYTHEMA [None]
  - FALL [None]
  - FOOT FRACTURE [None]
  - HEADACHE [None]
  - HYPERTENSION [None]
  - IMPAIRED HEALING [None]
  - PAIN [None]
  - PLEURISY [None]
  - POLYTRAUMATISM [None]
  - PROCEDURAL SITE REACTION [None]
  - TACHYCARDIA [None]
  - URINARY TRACT INFECTION [None]
  - VIRAL INFECTION [None]
